FAERS Safety Report 10955672 (Version 1)
Quarter: 2015Q1

REPORT INFORMATION
  Report Type: Spontaneous
  Country: US (occurrence: None)
  Receive Date: 20150325
  Receipt Date: 20150325
  Transmission Date: 20150721
  Serious: No
  Sender: FDA-Public Use
  Company Number: None

PATIENT
  Age: 78 Year
  Sex: Male

DRUGS (1)
  1. XTANDI [Suspect]
     Active Substance: ENZALUTAMIDE
     Dates: start: 20150122

REACTIONS (3)
  - Gastrooesophageal reflux disease [None]
  - Arthralgia [None]
  - Oedema [None]

NARRATIVE: CASE EVENT DATE: 20150125
